FAERS Safety Report 16347364 (Version 10)
Quarter: 2024Q4

REPORT INFORMATION
  Report Type: Spontaneous
  Country: US (occurrence: US)
  Receive Date: 20190523
  Receipt Date: 20241127
  Transmission Date: 20250114
  Serious: No
  Sender: PFIZER
  Company Number: US-PFIZER INC-2019213238

PATIENT
  Age: 67 Year
  Sex: Female

DRUGS (3)
  1. BOSULIF [Suspect]
     Active Substance: BOSUTINIB MONOHYDRATE
     Indication: Chronic myeloid leukaemia (in remission)
     Dosage: 500 MG, DAILY AT NIGHT WITH DINNER
     Route: 048
  2. BOSULIF [Suspect]
     Active Substance: BOSUTINIB MONOHYDRATE
     Dosage: 400 MG (4 TABS), DAILY (WITH FOOD)
     Route: 048
  3. BOSULIF [Suspect]
     Active Substance: BOSUTINIB MONOHYDRATE
     Dosage: 400 MG, 1X/DAY (TAKE ONE TAB (400 MG) DAILY WITH FOOD)
     Route: 048

REACTIONS (5)
  - Skin discolouration [Not Recovered/Not Resolved]
  - Skin depigmentation [Not Recovered/Not Resolved]
  - Alopecia [Not Recovered/Not Resolved]
  - Laryngitis [Unknown]
  - Diarrhoea [Not Recovered/Not Resolved]
